FAERS Safety Report 8477203-2 (Version None)
Quarter: 2012Q2

REPORT INFORMATION
  Report Type: 
  Country: None (occurrence: None)
  Receive Date: 20120625
  Receipt Date: 20120625
  Transmission Date: 20120825
  Serious: Yes (Hospitalization)
  Sender: FDA-Public Use
  Company Number: None

PATIENT
  Age: 39 Year
  Sex: Female
  Weight: 90.7194 kg

DRUGS (1)
  1. VIIBRYD [Suspect]
     Indication: DEPRESSION
     Dosage: ONCE A DAY 1 PO
     Route: 048
     Dates: start: 20120411, end: 20120415

REACTIONS (4)
  - HALLUCINATION, VISUAL [None]
  - FALL [None]
  - ASTHENIA [None]
  - RIB FRACTURE [None]
